FAERS Safety Report 4473167-7 (Version None)
Quarter: 2004Q3

REPORT INFORMATION
  Report Type: 
  Country: None (occurrence: None)
  Receive Date: 20040917
  Receipt Date: 20040709
  Transmission Date: 20050211
  Serious: No
  Sender: FDA-Public Use
  Company Number: US-JNJFOC-20040703408

PATIENT
  Age: 44 Year
  Sex: Female
  Weight: 48.9885 kg

DRUGS (4)
  1. ORTHO EVRA [Suspect]
     Indication: CONTRACEPTION
     Dosage: 1 DOSE(S), 3 IN 4 WEEK, TRANSDERMAL
     Route: 062
     Dates: start: 20040702
  2. NASONEX [Concomitant]
  3. GUAIFENESIN (GUAIFENESIN) [Concomitant]
  4. VITAMINS (VITAMINS) [Concomitant]

REACTIONS (3)
  - APPLICATION SITE PAIN [None]
  - ARTHROPATHY [None]
  - PARAESTHESIA [None]
